FAERS Safety Report 10501083 (Version 1)
Quarter: 2014Q4

REPORT INFORMATION
  Report Type: Spontaneous
  Country: US (occurrence: None)
  Receive Date: 20141006
  Receipt Date: 20141006
  Transmission Date: 20150528
  Serious: Yes (Hospitalization)
  Sender: FDA-Public Use
  Company Number: None

PATIENT
  Age: 67 Year
  Sex: Male
  Weight: 110 kg

DRUGS (2)
  1. NAFCILLIN [Suspect]
     Active Substance: NAFCILLIN\NAFCILLIN SODIUM
     Indication: DIABETIC FOOT INFECTION
     Dosage: 2 MG OTHER IV
     Route: 042
     Dates: start: 20140514, end: 20140517
  2. IBUPROFEN. [Suspect]
     Active Substance: IBUPROFEN
     Indication: OSTEOARTHRITIS
     Route: 048
     Dates: start: 20140217, end: 20140512

REACTIONS (4)
  - Nephritis [None]
  - Blood creatinine increased [None]
  - Tubulointerstitial nephritis [None]
  - Blood urea increased [None]

NARRATIVE: CASE EVENT DATE: 20140512
